FAERS Safety Report 9714268 (Version 2)
Quarter: 2013Q4

REPORT INFORMATION
  Report Type: Spontaneous
  Country: US (occurrence: US)
  Receive Date: 20131126
  Receipt Date: 20131126
  Transmission Date: 20140711
  Serious: No
  Sender: FDA-Public Use
  Company Number: US-GILEAD-2008-0019200

PATIENT
  Sex: Female
  Weight: 86.18 kg

DRUGS (10)
  1. LETAIRIS [Suspect]
     Indication: PULMONARY ARTERIAL HYPERTENSION
     Route: 048
     Dates: start: 20080128
  2. PRINIVIL [Concomitant]
  3. HYDROCHLOROTHIAZIDE [Concomitant]
  4. CELEBREX [Concomitant]
  5. CRESTOR [Concomitant]
  6. CLARINEX [Concomitant]
  7. FLONASE [Concomitant]
  8. ZOLOFT [Concomitant]
  9. COLCHICINE [Concomitant]
  10. PATANOL [Concomitant]

REACTIONS (4)
  - Lethargy [Unknown]
  - Fatigue [Unknown]
  - Dizziness [Unknown]
  - Sinusitis [Unknown]
